FAERS Safety Report 17256542 (Version 2)
Quarter: 2020Q2

REPORT INFORMATION
  Report Type: Report from Study
  Country: None (occurrence: CO)
  Receive Date: 20200110
  Receipt Date: 20200624
  Transmission Date: 20200713
  Serious: Yes (Hospitalization)
  Sender: FDA-Public Use
  Company Number: CO-ABBVIE-20K-036-3227563-00

PATIENT
  Age: 26 Year
  Sex: Male
  Weight: 80 kg

DRUGS (1)
  1. HUMIRA [Suspect]
     Active Substance: ADALIMUMAB
     Indication: HIDRADENITIS
     Route: 058
     Dates: start: 20180131, end: 20191223

REACTIONS (4)
  - Bone neoplasm [Recovering/Resolving]
  - Post procedural complication [Unknown]
  - Hidradenitis [Recovering/Resolving]
  - Disability [Unknown]

NARRATIVE: CASE EVENT DATE: 20191218
